FAERS Safety Report 9097182 (Version 2)
Quarter: 2013Q1

REPORT INFORMATION
  Report Type: Report from Study
  Country: JP (occurrence: JP)
  Receive Date: 20130212
  Receipt Date: 20130304
  Transmission Date: 20140127
  Serious: Yes (Hospitalization, Other)
  Sender: FDA-Public Use
  Company Number: PHHY2013JP013037

PATIENT
  Age: 55 Year
  Sex: Female

DRUGS (10)
  1. LEPONEX / CLOZARIL [Suspect]
     Indication: SCHIZOPHRENIA
     Dosage: 12.5 MG
     Route: 048
     Dates: start: 20130117, end: 20130117
  2. LEPONEX / CLOZARIL [Suspect]
     Dosage: 25 MG
     Route: 048
     Dates: start: 20130118, end: 20130120
  3. LEPONEX / CLOZARIL [Suspect]
     Dosage: 50 MG
     Route: 048
     Dates: start: 20130121, end: 20130123
  4. LEPONEX / CLOZARIL [Suspect]
     Dosage: 75 MG
     Route: 048
     Dates: start: 20130124, end: 20130125
  5. LEPONEX / CLOZARIL [Suspect]
     Dosage: 100 MG
     Route: 048
     Dates: start: 20130126, end: 20130127
  6. LEPONEX / CLOZARIL [Suspect]
     Dosage: 125 MG
     Route: 048
     Dates: start: 20130128, end: 20130205
  7. LEPONEX / CLOZARIL [Suspect]
     Dosage: 12.5 MG
     Route: 048
     Dates: start: 20130213
  8. OLANZAPINE [Concomitant]
     Dosage: 15 MG
     Route: 048
     Dates: start: 20130117
  9. OLANZAPINE [Concomitant]
     Dosage: 10 MG
     Route: 048
  10. OLANZAPINE [Concomitant]
     Dosage: 5 MG
     Route: 048
     Dates: end: 20130205

REACTIONS (9)
  - Lymphadenitis [Recovered/Resolved]
  - Diarrhoea [Recovered/Resolved]
  - Decreased appetite [Unknown]
  - C-reactive protein increased [Recovered/Resolved]
  - Hypotension [Unknown]
  - Heart rate increased [Unknown]
  - Body temperature increased [Recovered/Resolved]
  - White blood cell count increased [Recovered/Resolved]
  - Neutrophil count increased [Recovered/Resolved]
